FAERS Safety Report 24675221 (Version 2)
Quarter: 2024Q4

REPORT INFORMATION
  Report Type: Spontaneous
  Country: JP (occurrence: JP)
  Receive Date: 20241128
  Receipt Date: 20241215
  Transmission Date: 20250115
  Serious: Yes (Other)
  Sender: SANOFI AVENTIS
  Company Number: JP-MLMSERVICE-20241115-PI257565-00103-2

PATIENT
  Age: 65 Year
  Sex: Female

DRUGS (8)
  1. CLARITHROMYCIN [Suspect]
     Active Substance: CLARITHROMYCIN
     Indication: Mycobacterium avium complex infection
     Dosage: LONG-TERM ORAL ADMINISTRATION
     Route: 048
     Dates: start: 2020
  2. CLARITHROMYCIN [Suspect]
     Active Substance: CLARITHROMYCIN
     Indication: Pneumonia bacterial
  3. RIFAMPIN [Suspect]
     Active Substance: RIFAMPIN
     Indication: Mycobacterium avium complex infection
     Dosage: LONG-TERM ORAL ADMINISTRATION
     Route: 048
     Dates: start: 2020
  4. RIFAMPIN [Suspect]
     Active Substance: RIFAMPIN
     Indication: Pneumonia bacterial
  5. ETHAMBUTOL [Suspect]
     Active Substance: ETHAMBUTOL HYDROCHLORIDE
     Indication: Mycobacterium avium complex infection
     Dosage: LONG-TERM ORAL ADMINISTRATION
     Route: 048
     Dates: start: 2020
  6. ETHAMBUTOL [Suspect]
     Active Substance: ETHAMBUTOL HYDROCHLORIDE
     Indication: Pneumonia bacterial
  7. SITAFLOXACIN [Suspect]
     Active Substance: SITAFLOXACIN
     Indication: Mycobacterium avium complex infection
     Dosage: LONG-TERM ORAL ADMINISTRATION
     Route: 048
     Dates: start: 202002
  8. SITAFLOXACIN [Suspect]
     Active Substance: SITAFLOXACIN
     Indication: Pneumonia bacterial

REACTIONS (4)
  - Pneumatosis intestinalis [Recovered/Resolved]
  - Abdominal pain [Recovered/Resolved]
  - Abdominal distension [Recovered/Resolved]
  - Dysbiosis [Recovered/Resolved]

NARRATIVE: CASE EVENT DATE: 20200101
